FAERS Safety Report 24816496 (Version 1)
Quarter: 2025Q1

REPORT INFORMATION
  Report Type: Report from Study
  Country: IN (occurrence: IN)
  Receive Date: 20250107
  Receipt Date: 20250107
  Transmission Date: 20250408
  Serious: Yes (Other)
  Sender: DAIICHI
  Company Number: IN-AstraZeneca-CH-00776846A

PATIENT
  Sex: Female
  Weight: 67 kg

DRUGS (8)
  1. ENHERTU [Suspect]
     Active Substance: FAM-TRASTUZUMAB DERUXTECAN-NXKI
     Indication: HER2 low breast cancer
     Dosage: 900 MG, QD
     Route: 041
  2. ENHERTU [Suspect]
     Active Substance: FAM-TRASTUZUMAB DERUXTECAN-NXKI
     Dosage: 900 MG, QD
     Route: 041
  3. ENHERTU [Suspect]
     Active Substance: FAM-TRASTUZUMAB DERUXTECAN-NXKI
     Dosage: 900 MG, QD
     Route: 041
  4. ENHERTU [Suspect]
     Active Substance: FAM-TRASTUZUMAB DERUXTECAN-NXKI
     Dosage: 900 MG, QD
     Route: 041
  5. LYNPARZA [Suspect]
     Active Substance: OLAPARIB
     Indication: Product used for unknown indication
     Route: 048
  6. LYNPARZA [Suspect]
     Active Substance: OLAPARIB
     Route: 048
  7. LYNPARZA [Suspect]
     Active Substance: OLAPARIB
     Route: 048
  8. LYNPARZA [Suspect]
     Active Substance: OLAPARIB
     Route: 048

REACTIONS (3)
  - Breast cancer metastatic [Unknown]
  - Human epidermal growth factor receptor negative [Unknown]
  - Weight decreased [Unknown]
